FAERS Safety Report 5663582-8 (Version None)
Quarter: 2008Q1

REPORT INFORMATION
  Report Type: 
  Country: None (occurrence: None)
  Receive Date: 20080313
  Receipt Date: 20080220
  Transmission Date: 20080703
  Serious: No
  Sender: FDA-Public Use
  Company Number: US-BOEHRINGER INGELHEIM GMBH, GERMANY-2008-BP-01395BP

PATIENT
  Age: 81 Year
  Sex: Male
  Weight: 82 kg

DRUGS (1)
  1. AGGRENOX [Suspect]
     Dates: end: 20080115

REACTIONS (1)
  - RASH [None]
